FAERS Safety Report 23996250 (Version 6)
Quarter: 2025Q1

REPORT INFORMATION
  Report Type: Report from Study
  Country: GB (occurrence: GB)
  Receive Date: 20240620
  Receipt Date: 20250211
  Transmission Date: 20250408
  Serious: Yes (Hospitalization, Other)
  Sender: TAKEDA
  Company Number: GB-TAKEDA-2024TUS061042

PATIENT
  Sex: Male

DRUGS (4)
  1. TEDUGLUTIDE [Suspect]
     Active Substance: TEDUGLUTIDE
     Indication: Short-bowel syndrome
  2. TEDUGLUTIDE [Suspect]
     Active Substance: TEDUGLUTIDE
  3. TEDUGLUTIDE [Suspect]
     Active Substance: TEDUGLUTIDE
  4. TEDUGLUTIDE [Suspect]
     Active Substance: TEDUGLUTIDE

REACTIONS (10)
  - Gallbladder enlargement [Unknown]
  - Erectile dysfunction [Unknown]
  - Malaise [Not Recovered/Not Resolved]
  - Stoma complication [Not Recovered/Not Resolved]
  - Headache [Not Recovered/Not Resolved]
  - Liquid product physical issue [Unknown]
  - Renal pain [Recovered/Resolved]
  - Pain [Recovered/Resolved]
  - Alcohol use [Unknown]
  - Abdominal pain [Unknown]
